FAERS Safety Report 24752361 (Version 3)
Quarter: 2025Q1

REPORT INFORMATION
  Report Type: Report from Study
  Country: CA (occurrence: None)
  Receive Date: 20241219
  Receipt Date: 20250221
  Transmission Date: 20250408
  Serious: Yes (Hospitalization)
  Sender: ORION
  Company Number: CA-PFIZER INC-202400326907

PATIENT
  Age: 74 Year
  Sex: Male
  Weight: 68 kg

DRUGS (12)
  1. METHOTREXATE [Suspect]
     Active Substance: METHOTREXATE
     Indication: Product used for unknown indication
  2. METHOTREXATE [Suspect]
     Active Substance: METHOTREXATE
  3. ORENCIA [Suspect]
     Active Substance: ABATACEPT
     Indication: Rheumatoid arthritis
     Dosage: CYCLICAL
  4. ORENCIA [Suspect]
     Active Substance: ABATACEPT
     Dosage: CYCLICAL
  5. ATORVASTATIN [Concomitant]
     Active Substance: ATORVASTATIN
  6. CALCIUM [Concomitant]
     Active Substance: CALCIUM
  7. CLOPIDOGREL [Concomitant]
     Active Substance: CLOPIDOGREL BISULFATE
  8. FLOVENT [Concomitant]
     Active Substance: FLUTICASONE PROPIONATE
  9. FOLIC ACID [Concomitant]
     Active Substance: FOLIC ACID
  10. MYRBETRIQ [Concomitant]
     Active Substance: MIRABEGRON
  11. NAPROXEN [Concomitant]
     Active Substance: NAPROXEN
  12. PANTOPRAZOLE [Concomitant]
     Active Substance: PANTOPRAZOLE

REACTIONS (11)
  - Abdominal pain upper [Not Recovered/Not Resolved]
  - Decreased appetite [Not Recovered/Not Resolved]
  - Vomiting [Not Recovered/Not Resolved]
  - Asthenia [Not Recovered/Not Resolved]
  - Weight decreased [Not Recovered/Not Resolved]
  - Nausea [Not Recovered/Not Resolved]
  - Gastrointestinal disorder [Not Recovered/Not Resolved]
  - Hypotension [Not Recovered/Not Resolved]
  - Liver disorder [Not Recovered/Not Resolved]
  - Oxygen saturation decreased [Not Recovered/Not Resolved]
  - Weight increased [Not Recovered/Not Resolved]
